FAERS Safety Report 4909296-0 (Version None)
Quarter: 2006Q1

REPORT INFORMATION
  Report Type: 
  Country: None (occurrence: None)
  Receive Date: 20060210
  Receipt Date: 20060210
  Transmission Date: 20060701
  Serious: Yes (Life-Threatening, Hospitalization)
  Sender: FDA-Public Use
  Company Number: None

PATIENT
  Age: 71 Year
  Sex: Male
  Weight: 50.7 kg

DRUGS (1)
  1. FUROSEMIDE [Suspect]

REACTIONS (2)
  - HYPOVOLAEMIA [None]
  - RENAL FAILURE ACUTE [None]
